FAERS Safety Report 14986594 (Version 1)
Quarter: 2018Q2

REPORT INFORMATION
  Report Type: Spontaneous
  Country: DE (occurrence: DE)
  Receive Date: 20180608
  Receipt Date: 20180608
  Transmission Date: 20180711
  Serious: Yes (Hospitalization)
  Sender: FDA-Public Use
  Company Number: DE-TEVA-2018-DE-903109

PATIENT
  Age: 84 Year
  Sex: Male

DRUGS (7)
  1. TORASEMID [Concomitant]
     Active Substance: TORSEMIDE
  2. SIMVASTATIN. [Concomitant]
     Active Substance: SIMVASTATIN
  3. ACETYLSALICYLSAEURE [Concomitant]
     Active Substance: ASPIRIN
  4. INSULIN HUMAN [Concomitant]
     Active Substance: INSULIN HUMAN
  5. RAMIPRIL. [Concomitant]
     Active Substance: RAMIPRIL
  6. PANTOPRAZOL [Concomitant]
     Active Substance: PANTOPRAZOLE SODIUM
  7. METOPROLOL. [Suspect]
     Active Substance: METOPROLOL

REACTIONS (2)
  - Dry gangrene [Unknown]
  - Contraindicated product administered [Unknown]

NARRATIVE: CASE EVENT DATE: 20151015
